FAERS Safety Report 8574568-8 (Version None)
Quarter: 2012Q3

REPORT INFORMATION
  Report Type: 
  Country: None (occurrence: None)
  Receive Date: 20120806
  Receipt Date: 20120723
  Transmission Date: 20120928
  Serious: No
  Sender: FDA-Public Use
  Company Number: US-009507513-1205USA04282

PATIENT

DRUGS (3)
  1. SINGULAIR [Suspect]
     Dosage: 10 MG, UNK
     Route: 048
  2. NASONEX [Concomitant]
  3. ZYRTEC [Concomitant]

REACTIONS (2)
  - IRRITABILITY [None]
  - OVERDOSE [None]
